FAERS Safety Report 25249899 (Version 1)
Quarter: 2025Q2

REPORT INFORMATION
  Report Type: Spontaneous
  Country: US (occurrence: US)
  Receive Date: 20250429
  Receipt Date: 20250429
  Transmission Date: 20250717
  Serious: No
  Sender: SUNOVION
  Company Number: US-MYOVANT SCIENCES GMBH-2024MYSCI0100914

PATIENT

DRUGS (8)
  1. ORGOVYX [Suspect]
     Active Substance: RELUGOLIX
     Indication: Prostate cancer
     Dosage: 360 MILLIGRAM, ONE TIME DOSE
     Route: 048
     Dates: start: 20240107, end: 20240107
  2. ORGOVYX [Suspect]
     Active Substance: RELUGOLIX
     Dosage: 120 MILLIGRAM, QD
     Route: 048
     Dates: start: 20240108
  3. ERGOCALCIFEROL [Concomitant]
     Active Substance: ERGOCALCIFEROL
     Indication: Product used for unknown indication
     Route: 065
  4. ATORVASTATIN CALCIUM [Concomitant]
     Active Substance: ATORVASTATIN CALCIUM
     Indication: Product used for unknown indication
     Route: 065
  5. B-COMPLEX                          /00003501/ [Concomitant]
     Indication: Product used for unknown indication
     Route: 065
  6. VITAMIN C [Concomitant]
     Active Substance: ASCORBIC ACID
     Indication: Product used for unknown indication
     Route: 065
  7. TURMERIC                           /01079602/ [Concomitant]
     Indication: Product used for unknown indication
     Route: 065
  8. XTANDI [Concomitant]
     Active Substance: ENZALUTAMIDE
     Indication: Product used for unknown indication
     Route: 065
     Dates: start: 20240107

REACTIONS (10)
  - Chest pain [Unknown]
  - Hot flush [Not Recovered/Not Resolved]
  - Arthralgia [Unknown]
  - Musculoskeletal discomfort [Unknown]
  - Insomnia [Unknown]
  - Nocturia [Not Recovered/Not Resolved]
  - Swelling [Unknown]
  - Hernia [Unknown]
  - Gastrooesophageal reflux disease [Unknown]
  - Product dose omission in error [Unknown]

NARRATIVE: CASE EVENT DATE: 20240101
